FAERS Safety Report 11371642 (Version 2)
Quarter: 2015Q3

REPORT INFORMATION
  Report Type: Spontaneous
  Country: GB (occurrence: GB)
  Receive Date: 20150812
  Receipt Date: 20150921
  Transmission Date: 20151125
  Serious: Yes (Death)
  Sender: FDA-Public Use
  Company Number: PHHY2015GB092485

PATIENT
  Age: 51 Year
  Sex: Male

DRUGS (2)
  1. QUETIAPINE [Suspect]
     Active Substance: QUETIAPINE
     Indication: SCHIZOPHRENIA
     Dosage: 800 MG, QD
     Route: 048
     Dates: start: 20100101, end: 20140924
  2. ZOPICLONE [Concomitant]
     Active Substance: ZOPICLONE
     Indication: PRODUCT USED FOR UNKNOWN INDICATION
     Route: 065

REACTIONS (2)
  - Toxicity to various agents [Fatal]
  - Arrhythmia [Fatal]

NARRATIVE: CASE EVENT DATE: 20140924
